FAERS Safety Report 4724819-2 (Version None)
Quarter: 2005Q3

REPORT INFORMATION
  Report Type: 
  Country: None (occurrence: None)
  Receive Date: 20050720
  Receipt Date: 20050720
  Transmission Date: 20060218
  Serious: Yes (Hospitalization, Disabling)
  Sender: FDA-Public Use
  Company Number: None

PATIENT
  Age: 55 Year
  Sex: Male

DRUGS (19)
  1. VELCADE [Suspect]
     Indication: MULTIPLE MYELOMA
     Dosage: 2.9MG  IVP   OVER 5MIN
     Route: 042
     Dates: start: 20041221, end: 20041221
  2. BORTEZOMIB [Suspect]
     Indication: MULTIPLE MYELOMA
     Dosage: 2.9MG IVP   OVER 5MIN
     Route: 042
     Dates: start: 20050110, end: 20050110
  3. GABAPENTIN [Concomitant]
  4. TRAZODONE HCL [Concomitant]
  5. EPOGEN [Concomitant]
  6. FUROSEMIDE [Concomitant]
  7. VARDENAFIL [Concomitant]
  8. OMEPRAZOLE [Concomitant]
  9. SLIDING SCALE INSULIN, REGULAR 70/30 INSULIN [Concomitant]
  10. IBUPROFEN [Concomitant]
  11. ALBUTEROL [Concomitant]
  12. CLORFENURAMINE [Concomitant]
  13. COLACE [Concomitant]
  14. ENALAPRIL MALEATE [Concomitant]
  15. GLYBURIDE [Concomitant]
  16. HYDROCHLOROTHIAZIDE [Concomitant]
  17. MILK OF MAGNESIA [Concomitant]
  18. METHOCARBAMOL [Concomitant]
  19. MULTI-VITAMIN [Concomitant]

REACTIONS (4)
  - NEUROPATHY PERIPHERAL [None]
  - PAIN IN EXTREMITY [None]
  - PARAESTHESIA [None]
  - SHOULDER PAIN [None]
